FAERS Safety Report 4955371-4 (Version None)
Quarter: 2006Q1

REPORT INFORMATION
  Report Type: 
  Country: None (occurrence: None)
  Receive Date: 20060328
  Receipt Date: 20060324
  Transmission Date: 20060701
  Serious: Yes (Hospitalization)
  Sender: FDA-Public Use
  Company Number: 2006PK00572

PATIENT
  Age: 974 Month
  Sex: Female

DRUGS (9)
  1. NOLVADEX [Suspect]
     Indication: BREAST CANCER FEMALE
     Route: 048
     Dates: start: 20010903
  2. FOSAMAX [Concomitant]
     Indication: OSTEOPOROSIS
     Route: 048
  3. KOMBIKALZ [Concomitant]
     Indication: OSTEOPOROSIS
     Route: 048
  4. CALCITONIN NASAL SPRAY [Concomitant]
     Indication: OSTEOPOROSIS
     Route: 045
  5. ISOPTIN [Concomitant]
     Indication: HYPERTENSION
     Route: 048
  6. ISOPTIN [Concomitant]
     Indication: CARDIAC FAILURE
     Route: 048
  7. INHIBACE PLUS [Concomitant]
     Indication: HYPERTENSION
     Route: 048
  8. PANTOPRAZOLE SODIUM [Concomitant]
     Indication: PROPHYLAXIS AGAINST GASTROINTESTINAL ULCER
     Route: 048
  9. TRAMABENE [Concomitant]
     Indication: ANALGESIC EFFECT
     Route: 048

REACTIONS (4)
  - ANOREXIA [None]
  - DEPRESSION [None]
  - VERTIGO [None]
  - WEIGHT DECREASED [None]
